FAERS Safety Report 8184667-0 (Version None)
Quarter: 2012Q1

REPORT INFORMATION
  Report Type: 
  Country: None (occurrence: None)
  Receive Date: 20120305
  Receipt Date: 20120223
  Transmission Date: 20120608
  Serious: Yes (Other)
  Sender: FDA-Public Use
  Company Number: US-CELGENEUS-163-21880-11122085

PATIENT
  Sex: Male
  Weight: 80.131 kg

DRUGS (16)
  1. DOXIL [Suspect]
     Indication: MULTIPLE MYELOMA
     Dosage: 8 MILLIGRAM
     Route: 065
  2. ASPIRIN [Concomitant]
     Dosage: 81 MILLIGRAM
     Route: 048
     Dates: start: 20110418
  3. LOSARTAN POTASSIUM [Concomitant]
     Indication: HYPERTENSION
     Route: 065
  4. CALCIUM [Concomitant]
     Indication: SUPPLEMENTATION THERAPY
     Dosage: 750 MILLIGRAM
     Route: 048
     Dates: start: 20110411
  5. EYE DROPS [Concomitant]
     Route: 065
  6. ALPHA LIPOIC ACID [Concomitant]
     Dosage: 1200 MILLIGRAM
     Route: 048
     Dates: start: 20110711
  7. AVELOX [Concomitant]
     Dosage: 400 MILLIGRAM
     Route: 048
     Dates: start: 20110720, end: 20110730
  8. ALPHA LIPOIC ACID [Concomitant]
     Indication: NEUROPATHY PERIPHERAL
     Dosage: 600 MILLIGRAM
     Route: 048
     Dates: start: 20110411, end: 20110711
  9. HYZAAR [Concomitant]
     Dosage: 12.5 MILLIGRAM
     Route: 065
  10. FISH OIL [Concomitant]
     Dosage: 1 TABLET
     Route: 048
  11. REVLIMID [Suspect]
     Indication: MULTIPLE MYELOMA
     Dosage: 10 MILLIGRAM
     Route: 048
  12. CRESTOR [Concomitant]
     Dosage: 20 MILLIGRAM
     Route: 048
  13. ACYCLOVIR [Concomitant]
     Dosage: 400 MILLIGRAM
     Route: 048
     Dates: start: 20110412
  14. ZOMETA [Concomitant]
     Indication: BONE LOSS
     Dosage: 4 MILLIGRAM
     Route: 041
     Dates: start: 20110418
  15. VELCADE [Suspect]
     Indication: MULTIPLE MYELOMA
     Dosage: 2 MILLIGRAM
     Route: 065
  16. DECADRON [Suspect]
     Indication: MULTIPLE MYELOMA
     Dosage: 40 MILLIGRAM
     Route: 048

REACTIONS (1)
  - ATRIAL FLUTTER [None]
